FAERS Safety Report 17557483 (Version 3)
Quarter: 2020Q2

REPORT INFORMATION
  Report Type: Spontaneous
  Country: US (occurrence: US)
  Receive Date: 20200318
  Receipt Date: 20200420
  Transmission Date: 20200713
  Serious: Yes (Other)
  Sender: FDA-Public Use
  Company Number: US-BAYER-2020-039781

PATIENT
  Age: 71 Year
  Sex: Male

DRUGS (1)
  1. NUBEQA [Suspect]
     Active Substance: DAROLUTAMIDE
     Indication: PROSTATE CANCER
     Dosage: 600 MG, BID
     Route: 048
     Dates: start: 20200115

REACTIONS (6)
  - Vomiting [None]
  - Pneumonia [None]
  - Vomiting [None]
  - Constipation [None]
  - Weight decreased [None]
  - Wrong technique in product usage process [None]

NARRATIVE: CASE EVENT DATE: 202003
